FAERS Safety Report 14384447 (Version 1)
Quarter: 2018Q1

REPORT INFORMATION
  Report Type: Spontaneous
  Country: SG (occurrence: SG)
  Receive Date: 20180115
  Receipt Date: 20180115
  Transmission Date: 20180509
  Serious: Yes (Hospitalization)
  Sender: FDA-Public Use
  Company Number: SG-PERRIGO-18SG000078

PATIENT
  Age: 27 Year
  Sex: Female
  Weight: 60.15 kg

DRUGS (1)
  1. ACETAMINOPHEN. [Suspect]
     Active Substance: ACETAMINOPHEN
     Indication: INTENTIONAL OVERDOSE
     Dosage: 8 G, SINGLE
     Route: 048

REACTIONS (2)
  - Intentional overdose [Recovered/Resolved]
  - Drug-induced liver injury [Recovered/Resolved]
